FAERS Safety Report 9994930 (Version 1)
Quarter: 2014Q1

REPORT INFORMATION
  Report Type: Spontaneous
  Country: US (occurrence: None)
  Receive Date: 20140225
  Receipt Date: 20140225
  Transmission Date: 20141002
  Serious: Yes (Hospitalization)
  Sender: FDA-Public Use
  Company Number: 2013-320

PATIENT
  Age: 58 Year
  Sex: Male
  Weight: 107.9 kg

DRUGS (11)
  1. PRIALT [Suspect]
     Indication: POST LAMINECTOMY SYNDROME
     Dosage: UNK UG, QH, INTRATHECAL
     Route: 037
     Dates: start: 20130615
  2. PRIALT [Suspect]
     Dosage: UNK UG, QH, INTRATHECAL
     Route: 037
     Dates: start: 20130615
  3. METHADONE HCL (METHADONE HYDROCHLORIDE) [Concomitant]
  4. CYMBALTA [Concomitant]
  5. AMBIEN (ZOLPIDEM TARTRATE) [Concomitant]
  6. PARACETAMOL A (PARACETAMOL) [Concomitant]
  7. IMITREX (SUMATRIPTAN) [Concomitant]
  8. ARTHROTEC (DICLOFENAC SODIUM, MISOPROSTOL) [Concomitant]
  9. METOPROLOL (METOPROLOL TARTRATE) [Concomitant]
  10. GABAPENTIN (GABAPENTIN) [Concomitant]
  11. PROZAC (FLUOXETINE HYDROCHLORIDE) [Concomitant]

REACTIONS (4)
  - Medication error [None]
  - Overdose [None]
  - Urinary retention [None]
  - Ataxia [None]
